FAERS Safety Report 8912612 (Version 1)
Quarter: 2012Q4

REPORT INFORMATION
  Report Type: 
  Country: MX (occurrence: MX)
  Receive Date: 20121116
  Receipt Date: 20121116
  Transmission Date: 20130627
  Serious: Yes (Hospitalization)
  Sender: FDA-Public Use
  Company Number: MX-009507513-1210MEX002991

PATIENT
  Age: 52 Year
  Sex: Female

DRUGS (3)
  1. VICTRELIS [Suspect]
     Indication: HEPATITIS C
     Dosage: 800 mg, q8h
     Route: 048
  2. RIBAVIRIN [Suspect]
     Dosage: 1200 mg qd
     Route: 048
  3. PEGINTERFERON ALFA-2B [Suspect]
     Dosage: 180 Microgram, qw

REACTIONS (6)
  - Lipase increased [Not Recovered/Not Resolved]
  - Amylase increased [Not Recovered/Not Resolved]
  - Gastroenteritis [Not Recovered/Not Resolved]
  - Dehydration [Not Recovered/Not Resolved]
  - Abdominal pain [Recovered/Resolved]
  - Blood creatinine increased [Recovered/Resolved]
